FAERS Safety Report 25353102 (Version 1)
Quarter: 2025Q2

REPORT INFORMATION
  Report Type: Spontaneous
  Country: IL (occurrence: IL)
  Receive Date: 20250523
  Receipt Date: 20250523
  Transmission Date: 20250717
  Serious: Yes (Other)
  Sender: NOVARTIS
  Company Number: IL-002147023-NVSC2025IL081123

PATIENT
  Age: 6 Year
  Sex: Female

DRUGS (2)
  1. CYCLOSPORINE [Suspect]
     Active Substance: CYCLOSPORINE
     Indication: Product used for unknown indication
     Route: 065
  2. BLINATUMOMAB [Concomitant]
     Active Substance: BLINATUMOMAB
     Indication: Product used for unknown indication
     Route: 065

REACTIONS (3)
  - Graft versus host disease [Unknown]
  - B-cell type acute leukaemia [Unknown]
  - Disease progression [Unknown]
